FAERS Safety Report 6125313-7 (Version None)
Quarter: 2009Q1

REPORT INFORMATION
  Report Type: 
  Country: None (occurrence: None)
  Receive Date: 20090320
  Receipt Date: 20090318
  Transmission Date: 20090719
  Serious: Yes (Hospitalization)
  Sender: FDA-Public Use
  Company Number: FR-JNJFOC-20090304406

PATIENT
  Age: 78 Year
  Sex: Female

DRUGS (7)
  1. TAVANIC [Suspect]
     Indication: URINARY TRACT INFECTION
     Route: 048
  2. PREVISCAN [Interacting]
     Indication: PROPHYLAXIS
     Route: 048
  3. ELISOR [Concomitant]
     Indication: ATRIAL FIBRILLATION
     Route: 048
  4. SOTALOL HYDROCHLORIDE [Concomitant]
     Route: 048
  5. COTAREG [Concomitant]
     Indication: ATRIAL FIBRILLATION
     Route: 048
  6. CONDROSULF [Concomitant]
     Route: 048
  7. AERIUS [Concomitant]
     Route: 048

REACTIONS (5)
  - BLOOD PRESSURE DECREASED [None]
  - DRUG INTERACTION [None]
  - HAEMOGLOBINAEMIA [None]
  - INTERNATIONAL NORMALISED RATIO INCREASED [None]
  - MUSCLE HAEMORRHAGE [None]
